FAERS Safety Report 5925547-8 (Version None)
Quarter: 2008Q4

REPORT INFORMATION
  Report Type: 
  Country: None (occurrence: None)
  Receive Date: 20081021
  Receipt Date: 20081015
  Transmission Date: 20090506
  Serious: Yes (Death)
  Sender: FDA-Public Use
  Company Number: PHHY2008JP25010

PATIENT
  Age: 87 Year
  Sex: Female

DRUGS (3)
  1. EXJADE [Suspect]
     Indication: IRON OVERLOAD
     Dosage: 625 MG
     Route: 048
     Dates: start: 20080714, end: 20080914
  2. EXJADE [Suspect]
     Indication: MYELODYSPLASTIC SYNDROME
  3. EXJADE [Suspect]
     Indication: HAEMOCHROMATOSIS

REACTIONS (3)
  - CARDIAC FAILURE [None]
  - DEPRESSED LEVEL OF CONSCIOUSNESS [None]
  - GENERAL PHYSICAL HEALTH DETERIORATION [None]
